FAERS Safety Report 7528335-4 (Version None)
Quarter: 2011Q2

REPORT INFORMATION
  Report Type: 
  Country: None (occurrence: None)
  Receive Date: 20110607
  Receipt Date: 20110526
  Transmission Date: 20111010
  Serious: Yes (Other)
  Sender: FDA-Public Use
  Company Number: AR-MEDIMMUNE-MEDI-0013233

PATIENT
  Sex: Female
  Weight: 1.248 kg

DRUGS (10)
  1. GENTAMICINE SULFATE [Concomitant]
     Dates: start: 20110308, end: 20110311
  2. VITAMIN A [Concomitant]
     Dates: start: 20110318, end: 20110319
  3. ASCORBIC ACID [Concomitant]
     Dates: start: 20110318, end: 20110319
  4. VITAMIN D [Concomitant]
     Dates: start: 20110318, end: 20110319
  5. SYNAGIS [Suspect]
     Route: 030
  6. SURFACTANT [Concomitant]
     Dates: start: 20110309, end: 20110309
  7. FELLOUS SULFATE [Concomitant]
     Dates: start: 20110407, end: 20110519
  8. PENICILINE [Concomitant]
     Dates: start: 20110308, end: 20110311
  9. CAFEIN [Concomitant]
     Route: 048
     Dates: start: 20110309, end: 20110317
  10. CAFEIN [Concomitant]
     Route: 048
     Dates: start: 20110317, end: 20110414

REACTIONS (4)
  - OXYGEN SATURATION DECREASED [None]
  - OBSTRUCTIVE AIRWAYS DISORDER [None]
  - MEDIASTINAL MASS [None]
  - HYPOPHARYNGEAL NEOPLASM [None]
